FAERS Safety Report 9263236 (Version 2)
Quarter: 2013Q2

REPORT INFORMATION
  Report Type: Spontaneous
  Country: US (occurrence: US)
  Receive Date: 20130430
  Receipt Date: 20130513
  Transmission Date: 20140414
  Serious: Yes (Hospitalization)
  Sender: FDA-Public Use
  Company Number: US-B.I. PHARMACEUTICALS,INC./RIDGEFIELD-2013-BI-11043BP

PATIENT
  Sex: Female
  Weight: 54 kg

DRUGS (5)
  1. CATAPRES TTS [Suspect]
     Indication: HYPERTENSION
     Route: 061
     Dates: start: 201107, end: 201108
  2. CATAPRES [Suspect]
     Indication: HYPERTENSION
     Route: 048
     Dates: start: 2008
  3. DILTIAZAM CR [Concomitant]
     Indication: HYPERTENSION
     Dosage: 180 MG
     Route: 048
     Dates: end: 2011
  4. CHLORTHALIDONE [Concomitant]
     Indication: OEDEMA
     Dosage: 25 MG
     Route: 048
     Dates: end: 2012
  5. LISINOPRIL [Concomitant]
     Indication: HYPERTENSION
     Dosage: 40 MG
     Route: 048
     Dates: end: 2012

REACTIONS (4)
  - Blood potassium decreased [Recovered/Resolved]
  - Urticaria [Recovered/Resolved]
  - Blood pressure abnormal [Not Recovered/Not Resolved]
  - Somnolence [Not Recovered/Not Resolved]
